FAERS Safety Report 6210364-4 (Version None)
Quarter: 2009Q2

REPORT INFORMATION
  Report Type: 
  Country: None (occurrence: None)
  Receive Date: 20090529
  Receipt Date: 20090529
  Transmission Date: 20091009
  Serious: Yes (Other)
  Sender: FDA-Public Use
  Company Number: None

PATIENT
  Age: 32 Year
  Sex: Female
  Weight: 70.3075 kg

DRUGS (2)
  1. LAMISIL [Suspect]
     Indication: ONYCHOMYCOSIS
     Dosage: 1 PILL A DAY 3 MONTHS PO
     Route: 048
     Dates: start: 20080103, end: 20080203
  2. TERBINAFINE -GENERIC FOR 250MG [Suspect]
     Indication: ONYCHOMYCOSIS
     Dosage: 1 PILL A DAY 3 MONTHS PO
     Route: 048
     Dates: start: 20080203, end: 20080403

REACTIONS (4)
  - DEHYDRATION [None]
  - FATIGUE [None]
  - TYPE 2 DIABETES MELLITUS [None]
  - VISUAL ACUITY REDUCED [None]
